FAERS Safety Report 6432322-7 (Version None)
Quarter: 2009Q4

REPORT INFORMATION
  Report Type: 
  Country: None (occurrence: None)
  Receive Date: 20091105
  Receipt Date: 20091022
  Transmission Date: 20100525
  Serious: Yes (Hospitalization)
  Sender: FDA-Public Use
  Company Number: 8051080

PATIENT
  Age: 70 Year
  Sex: Female
  Weight: 88 kg

DRUGS (5)
  1. CDP870 [Suspect]
     Indication: RHEUMATOID ARTHRITIS
     Dosage: 200 MG 1/2W SC
     Route: 058
     Dates: start: 20050829, end: 20060731
  2. CDP870 [Suspect]
     Indication: RHEUMATOID ARTHRITIS
     Dosage: 400 MG 1/2W SC
     Route: 058
     Dates: start: 20060915, end: 20080211
  3. CDP870 [Suspect]
     Indication: RHEUMATOID ARTHRITIS
     Dosage: 200 MG 2/W SC
     Route: 058
     Dates: start: 20080227, end: 20090824
  4. METHOTREXATE [Concomitant]
  5. DICLOFENAC [Concomitant]

REACTIONS (18)
  - AORTIC DISORDER [None]
  - AORTIC VALVE DISEASE [None]
  - AORTIC VALVE INCOMPETENCE [None]
  - BACTERIURIA [None]
  - CERVICAL CYST [None]
  - CONDITION AGGRAVATED [None]
  - GASTRODUODENITIS [None]
  - GOITRE [None]
  - HAEMATURIA [None]
  - HYDROTHORAX [None]
  - HYPERTENSION [None]
  - INDURATION [None]
  - LEFT VENTRICULAR DYSFUNCTION [None]
  - LEUKOCYTURIA [None]
  - PLEURAL EFFUSION [None]
  - PLEURISY [None]
  - RENAL CYST [None]
  - RHEUMATOID ARTHRITIS [None]
